FAERS Safety Report 23578508 (Version 5)
Quarter: 2025Q1

REPORT INFORMATION
  Report Type: Spontaneous
  Country: US (occurrence: US)
  Receive Date: 20240229
  Receipt Date: 20250107
  Transmission Date: 20250409
  Serious: Yes (Hospitalization)
  Sender: ROCHE
  Company Number: US-ROCHE-3515081

PATIENT
  Age: 38 Year
  Sex: Female
  Weight: 76.2 kg

DRUGS (3)
  1. OCREVUS [Suspect]
     Active Substance: OCRELIZUMAB
     Indication: Relapsing-remitting multiple sclerosis
     Route: 042
     Dates: start: 201711
  2. OCREVUS [Suspect]
     Active Substance: OCRELIZUMAB
     Route: 042
     Dates: start: 20220802, end: 20230208
  3. RITUXIMAB [Suspect]
     Active Substance: RITUXIMAB
     Indication: Relapsing-remitting multiple sclerosis
     Route: 065

REACTIONS (9)
  - Diverticulitis intestinal perforated [Recovered/Resolved]
  - Maternal exposure before pregnancy [Unknown]
  - Febrile neutropenia [Recovered/Resolved]
  - Hypogammaglobulinaemia [Recovered/Resolved]
  - Mouth ulceration [Recovered/Resolved]
  - Off label use [Unknown]
  - Subcutaneous abscess [Recovered/Resolved]
  - Oral herpes [Unknown]
  - Blood immunoglobulin G decreased [Unknown]

NARRATIVE: CASE EVENT DATE: 20230906
